FAERS Safety Report 8223171-8 (Version None)
Quarter: 2012Q1

REPORT INFORMATION
  Report Type: 
  Country: None (occurrence: None)
  Receive Date: 20120321
  Receipt Date: 20120313
  Transmission Date: 20120608
  Serious: No
  Sender: FDA-Public Use
  Company Number: US-BIOGENIDEC-2012BI008926

PATIENT
  Age: 64 Year
  Sex: Female

DRUGS (6)
  1. AVONEX [Suspect]
     Route: 030
     Dates: start: 20020322, end: 20060401
  2. AVONEX [Suspect]
     Indication: MULTIPLE SCLEROSIS
     Route: 030
  3. AVONEX [Suspect]
     Route: 030
     Dates: start: 20090418
  4. AVONEX [Suspect]
     Route: 030
     Dates: start: 20020322, end: 20060401
  5. AVONEX [Suspect]
     Route: 030
  6. AVONEX [Suspect]
     Route: 030
     Dates: start: 20090418

REACTIONS (4)
  - PRURITUS [None]
  - INJECTION SITE ERYTHEMA [None]
  - INFLUENZA LIKE ILLNESS [None]
  - INJECTION SITE MASS [None]
